FAERS Safety Report 22306683 (Version 1)
Quarter: 2023Q2

REPORT INFORMATION
  Report Type: Report from Study
  Country: JP (occurrence: JP)
  Receive Date: 20230511
  Receipt Date: 20230511
  Transmission Date: 20230721
  Serious: No
  Sender: FDA-Public Use
  Company Number: JP-ABBVIE-4749501

PATIENT
  Age: 30 Year
  Sex: Male

DRUGS (15)
  1. UPADACITINIB [Suspect]
     Active Substance: UPADACITINIB
     Indication: Crohn^s disease
     Route: 048
     Dates: start: 20200915, end: 20201020
  2. RINDERON V [Concomitant]
     Active Substance: BETAMETHASONE VALERATE
     Indication: Dermatitis atopic
     Dosage: TIME INTERVAL: AS NECESSARY
     Route: 061
     Dates: start: 20220310, end: 20220327
  3. CALONAL [Concomitant]
     Active Substance: ACETAMINOPHEN
     Indication: Anal fistula
     Dosage: TIME INTERVAL: AS NECESSARY
     Route: 048
     Dates: start: 20211215, end: 20220405
  4. OMEPRAZOLE [Concomitant]
     Active Substance: OMEPRAZOLE
     Indication: Prophylaxis against gastrointestinal ulcer
     Route: 042
     Dates: start: 20220308, end: 20220419
  5. LOCOID [Concomitant]
     Active Substance: HYDROCORTISONE BUTYRATE
     Indication: Dermatitis atopic
     Dosage: TIME INTERVAL: AS NECESSARY
     Route: 061
     Dates: start: 20220310, end: 20220327
  6. PREDONINE [Concomitant]
     Active Substance: PREDNISOLONE
     Indication: Crohn^s disease
     Route: 042
     Dates: start: 20220315, end: 20220328
  7. TEICOPLANIN [Concomitant]
     Active Substance: TEICOPLANIN
     Indication: Anal abscess
     Route: 042
     Dates: start: 20220318, end: 20220331
  8. UPADACITINIB [Suspect]
     Active Substance: UPADACITINIB
     Indication: Crohn^s disease
     Route: 048
     Dates: start: 20201021, end: 20220227
  9. UPADACITINIB [Suspect]
     Active Substance: UPADACITINIB
     Indication: Crohn^s disease
     Route: 048
     Dates: start: 20220502
  10. NADIFLOXACIN [Concomitant]
     Active Substance: NADIFLOXACIN
     Indication: Acne
     Dosage: TIME INTERVAL: AS NECESSARY
     Route: 061
     Dates: start: 20200707
  11. POSTERISAN FORTE [Concomitant]
     Indication: Proctalgia
     Dosage: TIME INTERVAL: AS NECESSARY
     Route: 061
     Dates: start: 20211208, end: 20220824
  12. ACETAMINOPHEN [Concomitant]
     Active Substance: ACETAMINOPHEN
     Indication: Proctalgia
     Dosage: TIME INTERVAL: AS NECESSARY
     Route: 042
     Dates: start: 20220228, end: 20220405
  13. ELNEOPA-NF NO2 [Concomitant]
     Indication: Nutritional supplementation
     Route: 042
     Dates: start: 20220319, end: 20220331
  14. MIYA-BM [Concomitant]
     Active Substance: CLOSTRIDIUM BUTYRICUM SPORES STRAIN M-55
     Indication: Probiotic therapy
     Dosage: TIME INTERVAL: 0.33333333 DAYS
     Route: 048
     Dates: start: 20220323, end: 20220329
  15. ALBUMIN TANNATE [Concomitant]
     Active Substance: ALBUMIN TANNATE
     Indication: Crohn^s disease
     Dosage: TIME INTERVAL: 0.33333333 DAYS
     Route: 048
     Dates: start: 20220323, end: 20220329

REACTIONS (1)
  - Drug-induced liver injury [Recovered/Resolved]

NARRATIVE: CASE EVENT DATE: 20220325
